FAERS Safety Report 7047685-1 (Version None)
Quarter: 2010Q4

REPORT INFORMATION
  Report Type: 
  Country: None (occurrence: None)
  Receive Date: 20101015
  Receipt Date: 20101005
  Transmission Date: 20110411
  Serious: Yes (Other)
  Sender: FDA-Public Use
  Company Number: US-MERCK-1010USA00483

PATIENT
  Age: 58 Year
  Sex: Female
  Weight: 68 kg

DRUGS (13)
  1. ZETIA [Suspect]
     Route: 048
     Dates: end: 20100801
  2. AMPYRA [Suspect]
     Indication: GAIT DISTURBANCE
     Route: 048
     Dates: start: 20100708
  3. BETASERON [Concomitant]
     Route: 065
  4. LISINOPRIL [Concomitant]
     Route: 048
  5. ATENOLOL [Concomitant]
     Route: 065
  6. CLONIDINE [Concomitant]
     Route: 065
  7. PRAVASTATIN SODIUM [Concomitant]
     Route: 065
     Dates: end: 20100801
  8. CELEXA [Concomitant]
     Route: 065
  9. SYNTHROID [Concomitant]
     Route: 065
  10. VESICARE [Concomitant]
     Route: 065
  11. ZANAFLEX [Concomitant]
     Route: 065
  12. FERROUS SULFATE [Concomitant]
     Route: 065
  13. POTASSIUM (UNSPECIFIED) [Concomitant]
     Route: 065

REACTIONS (5)
  - ABDOMINAL DISCOMFORT [None]
  - ABDOMINAL DISTENSION [None]
  - ALANINE AMINOTRANSFERASE INCREASED [None]
  - ASPARTATE AMINOTRANSFERASE INCREASED [None]
  - BLOOD ALKALINE PHOSPHATASE INCREASED [None]
